FAERS Safety Report 16853548 (Version 3)
Quarter: 2020Q1

REPORT INFORMATION
  Report Type: Report from Study
  Country: US (occurrence: US)
  Receive Date: 20190926
  Receipt Date: 20200327
  Transmission Date: 20200409
  Serious: Yes (Hospitalization, Other)
  Sender: FDA-Public Use
  Company Number: US-BIOGEN-2019BI00788058

PATIENT
  Sex: Female
  Weight: 154.36 kg

DRUGS (9)
  1. PREDNISONE. [Concomitant]
     Active Substance: PREDNISONE
     Indication: PRODUCT USED FOR UNKNOWN INDICATION
     Dosage: 2 TABLETS BY MOUTH DAILY
     Route: 048
  2. CYCLOBENZAPINE [Concomitant]
     Indication: MUSCLE SPASMS
     Dosage: AS NEEDED
     Route: 048
  3. HYDROCODONE BITARTRATE AND ACETAMINOPHEN [Concomitant]
     Active Substance: ACETAMINOPHEN\HYDROCODONE BITARTRATE
     Indication: PAIN
     Route: 048
  4. TYSABRI [Suspect]
     Active Substance: NATALIZUMAB
     Indication: MULTIPLE SCLEROSIS
     Dosage: INFUSED OVER ONE HOUR
     Route: 042
     Dates: start: 201404
  5. ROBAXIN [Concomitant]
     Active Substance: METHOCARBAMOL
     Indication: PRODUCT USED FOR UNKNOWN INDICATION
     Dosage: AS NEEDED
     Route: 048
  6. CLARITIN [Concomitant]
     Active Substance: LORATADINE
     Indication: PRODUCT USED FOR UNKNOWN INDICATION
     Route: 048
  7. VALIUM [Concomitant]
     Active Substance: DIAZEPAM
     Indication: PRODUCT USED FOR UNKNOWN INDICATION
     Dosage: TAKE 1 TABLET BY MOUTH 30 MINUTES PRIOR TO MRI
     Route: 048
  8. VENTOLIN HFA [Concomitant]
     Active Substance: ALBUTEROL SULFATE
     Indication: WHEEZING
     Dosage: INHALE 2 PUFFS INTO THE LUNGS EVRY 4 HOURS AS NEEDED
     Route: 048
  9. ZOLOFT [Concomitant]
     Active Substance: SERTRALINE HYDROCHLORIDE
     Indication: PRODUCT USED FOR UNKNOWN INDICATION
     Route: 048

REACTIONS (25)
  - Product dose omission [Unknown]
  - Insomnia [Unknown]
  - Arthritis [Unknown]
  - Oedema peripheral [Unknown]
  - Abdominal pain [Unknown]
  - Band sensation [Unknown]
  - Urinary retention [Unknown]
  - Constipation [Unknown]
  - Depression [Unknown]
  - Acute disseminated encephalomyelitis [Unknown]
  - Musculoskeletal stiffness [Unknown]
  - Neck pain [Recovered/Resolved]
  - Myelitis [Unknown]
  - Weight loss poor [Unknown]
  - Dyspnoea exertional [Unknown]
  - Rhinorrhoea [Unknown]
  - Headache [Unknown]
  - Muscle tightness [Unknown]
  - Vision blurred [Unknown]
  - Intervertebral disc protrusion [Unknown]
  - Mobility decreased [Unknown]
  - Eye discharge [Unknown]
  - Gait disturbance [Unknown]
  - Anxiety [Unknown]
  - Asthenia [Unknown]
